FAERS Safety Report 25859341 (Version 1)
Quarter: 2025Q3

REPORT INFORMATION
  Report Type: Spontaneous
  Country: JP (occurrence: JP)
  Receive Date: 20250929
  Receipt Date: 20250929
  Transmission Date: 20251020
  Serious: Yes (Hospitalization)
  Sender: BAYER HEALTHCARE PHARMACEUTICALS INC.
  Company Number: JP-BAYER-2025A128616

PATIENT
  Age: 40 Year
  Sex: Female

DRUGS (1)
  1. GADOBUTROL [Suspect]
     Active Substance: GADOBUTROL

REACTIONS (7)
  - Erythema [Unknown]
  - Pruritus [Unknown]
  - Hot flush [Unknown]
  - Face oedema [Unknown]
  - Feeling cold [Unknown]
  - Stertor [Unknown]
  - Respiratory arrest [Unknown]

NARRATIVE: CASE EVENT DATE: 20250918
